FAERS Safety Report 14189291 (Version 1)
Quarter: 2017Q4

REPORT INFORMATION
  Report Type: Spontaneous
  Country: US (occurrence: US)
  Receive Date: 20171115
  Receipt Date: 20171115
  Transmission Date: 20180321
  Serious: No
  Sender: FDA-Public Use
  Company Number: US-UNICHEM PHARMACEUTICALS (USA) INC-UCM201706-000174

PATIENT
  Age: 68 Year
  Sex: Female

DRUGS (4)
  1. LAMOTRIGINE. [Suspect]
     Active Substance: LAMOTRIGINE
  2. LAMOTRIGINE. [Suspect]
     Active Substance: LAMOTRIGINE
  3. LAMOTRIGINE. [Suspect]
     Active Substance: LAMOTRIGINE
  4. LAMOTRIGINE. [Suspect]
     Active Substance: LAMOTRIGINE
     Indication: BIPOLAR DISORDER
     Dates: start: 20170329

REACTIONS (5)
  - Pain [Unknown]
  - Condition aggravated [Unknown]
  - Gastrointestinal bacterial overgrowth [Unknown]
  - Oesophagitis [Unknown]
  - Drug intolerance [Unknown]
